FAERS Safety Report 10163232 (Version 1)
Quarter: 2014Q2

REPORT INFORMATION
  Report Type: Report from Study
  Country: AR (occurrence: AR)
  Receive Date: 20140509
  Receipt Date: 20140509
  Transmission Date: 20141212
  Serious: Yes (Other)
  Sender: FDA-Public Use
  Company Number: PHHY2014AR056580

PATIENT
  Sex: Female

DRUGS (1)
  1. DIOVAN [Suspect]
     Indication: HYPERTENSION
     Dosage: 160 MG, QD (IN THE MORNING)
     Route: 048

REACTIONS (3)
  - Diabetes mellitus [Recovering/Resolving]
  - Nervousness [Unknown]
  - Blood pressure increased [Recovered/Resolved]
